FAERS Safety Report 7228917-3 (Version None)
Quarter: 2011Q1

REPORT INFORMATION
  Report Type: 
  Country: None (occurrence: None)
  Receive Date: 20110117
  Receipt Date: 20110107
  Transmission Date: 20110831
  Serious: Yes (Hospitalization)
  Sender: FDA-Public Use
  Company Number: JP-SANOFI-AVENTIS-2011SA001285

PATIENT
  Age: 70 Year
  Sex: Male

DRUGS (4)
  1. OXALIPLATIN [Suspect]
     Indication: RECTAL CANCER
     Route: 041
     Dates: start: 20100430, end: 20100430
  2. OXALIPLATIN [Suspect]
     Route: 041
  3. OXALIPLATIN [Suspect]
     Route: 041
     Dates: start: 20100806, end: 20100806
  4. XELODA [Suspect]
     Indication: RECTAL CANCER
     Route: 048
     Dates: start: 20100430, end: 20100812

REACTIONS (1)
  - URINARY RETENTION [None]
